FAERS Safety Report 11217864 (Version 1)
Quarter: 2015Q2

REPORT INFORMATION
  Report Type: Spontaneous
  Country: US (occurrence: US)
  Receive Date: 20150625
  Receipt Date: 20150625
  Transmission Date: 20150821
  Serious: Yes (Other)
  Sender: FDA-Public Use
  Company Number: US-BAYER-2015-355982

PATIENT
  Age: 29 Year
  Sex: Female

DRUGS (1)
  1. SKYLA [Suspect]
     Active Substance: LEVONORGESTREL
     Indication: CONTRACEPTION
     Dosage: 14 MCG/24HR, CONT
     Route: 015
     Dates: start: 20150428, end: 20150615

REACTIONS (4)
  - Abdominal pain lower [None]
  - Menorrhagia [None]
  - Genital haemorrhage [None]
  - Vaginal haemorrhage [None]

NARRATIVE: CASE EVENT DATE: 201506
